FAERS Safety Report 5642977-2 (Version None)
Quarter: 2008Q1

REPORT INFORMATION
  Report Type: 
  Country: None (occurrence: None)
  Receive Date: 20080228
  Receipt Date: 20080220
  Transmission Date: 20080703
  Serious: Yes (Other)
  Sender: FDA-Public Use
  Company Number: A0711408A

PATIENT
  Age: 66 Year
  Sex: Female
  Weight: 62.2 kg

DRUGS (3)
  1. LAPATINIB [Suspect]
     Indication: COLORECTAL CANCER
     Dosage: 1000MG PER DAY
     Route: 048
     Dates: start: 20080218
  2. OXALIPLATIN [Suspect]
     Indication: COLORECTAL CANCER
     Dosage: 221MG SINGLE DOSE
     Route: 042
     Dates: start: 20080211
  3. CAPECITABINE [Suspect]
     Indication: COLORECTAL CANCER
     Dosage: 1650MG CYCLIC
     Route: 048
     Dates: start: 20080211

REACTIONS (3)
  - DIARRHOEA [None]
  - FATIGUE [None]
  - HYPONATRAEMIA [None]
